FAERS Safety Report 6662458-7 (Version None)
Quarter: 2010Q1

REPORT INFORMATION
  Report Type: 
  Country: None (occurrence: None)
  Receive Date: 20100329
  Receipt Date: 20100318
  Transmission Date: 20100710
  Serious: Yes (Hospitalization, Other)
  Sender: FDA-Public Use
  Company Number: 2009SP021076

PATIENT
  Age: 46 Year
  Sex: Female
  Weight: 65.7716 kg

DRUGS (4)
  1. NUVARING [Suspect]
     Indication: DRUG USE FOR UNKNOWN INDICATION
     Dates: start: 20040601, end: 20070801
  2. PROTONIX [Concomitant]
  3. NEXIUM [Concomitant]
  4. VALTREX [Concomitant]

REACTIONS (13)
  - ABORTION SPONTANEOUS [None]
  - ALCOHOL USE [None]
  - BREAST MASS [None]
  - CELLULITIS [None]
  - CHEST PAIN [None]
  - DEEP VEIN THROMBOSIS [None]
  - DRUG EXPOSURE DURING PREGNANCY [None]
  - HEART RATE INCREASED [None]
  - PALPITATIONS [None]
  - PREGNANCY WITH CONTRACEPTIVE DEVICE [None]
  - PULMONARY EMBOLISM [None]
  - RESPIRATORY RATE INCREASED [None]
  - STAPHYLOCOCCAL INFECTION [None]
